FAERS Safety Report 8851667 (Version 1)
Quarter: 2012Q4

REPORT INFORMATION
  Report Type: Spontaneous
  Country: US (occurrence: None)
  Receive Date: 20121018
  Receipt Date: 20121018
  Transmission Date: 20130627
  Serious: Yes (Life-Threatening)
  Sender: FDA-Public Use
  Company Number: None

PATIENT
  Age: 86 Year
  Sex: Male
  Weight: 84.82 kg

DRUGS (1)
  1. VISIPAQUE [Suspect]

REACTIONS (2)
  - Contrast media allergy [None]
  - No reaction on previous exposure to drug [None]
